FAERS Safety Report 19465935 (Version 2)
Quarter: 2021Q2

REPORT INFORMATION
  Report Type: Spontaneous
  Country: DK (occurrence: DK)
  Receive Date: 20210626
  Receipt Date: 20210626
  Transmission Date: 20210717
  Serious: Yes (Death)
  Sender: FDA-Public Use
  Company Number: DK-TEVA-2021-DK-1925308

PATIENT
  Age: 45 Year
  Sex: Male
  Weight: 100 kg

DRUGS (5)
  1. DIAZEPAM. [Suspect]
     Active Substance: DIAZEPAM
     Indication: SEDATIVE THERAPY
     Dosage: STRENGTH: UNKNOWN,30 MG
     Dates: start: 20180526
  2. METHADONE [Suspect]
     Active Substance: METHADONE HYDROCHLORIDE
     Indication: PAIN
     Dosage: 60 MG
     Route: 048
     Dates: start: 2021
  3. PARACETAMOL ^B. BRAUN^ [Concomitant]
     Indication: PAIN
     Dates: start: 20170715
  4. VERALOC [Suspect]
     Active Substance: VERAPAMIL HYDROCHLORIDE
     Indication: CLUSTER HEADACHE
     Dosage: 240  MG
     Route: 048
     Dates: start: 20210211
  5. GABAPENTIN ^2CARE4^ [Concomitant]
     Indication: PAIN
     Dates: start: 20201104

REACTIONS (1)
  - Toxicity to various agents [Fatal]

NARRATIVE: CASE EVENT DATE: 20210308
